FAERS Safety Report 5796357-X (Version None)
Quarter: 2008Q3

REPORT INFORMATION
  Report Type: 
  Country: None (occurrence: None)
  Receive Date: 20080701
  Receipt Date: 20080623
  Transmission Date: 20090109
  Serious: Yes (Death)
  Sender: FDA-Public Use
  Company Number: US-JNJFOC-20071205404

PATIENT
  Sex: Female
  Weight: 40.37 kg

DRUGS (7)
  1. REMICADE [Suspect]
     Indication: RHEUMATOID ARTHRITIS
     Route: 042
  2. IMUREN [Concomitant]
     Indication: RHEUMATOID ARTHRITIS
  3. TOPROL-XL [Concomitant]
  4. PREDNISONE TAB [Concomitant]
  5. FEMORA [Concomitant]
  6. PLAQUENIL [Concomitant]
  7. FORTEO [Concomitant]
     Indication: OSTEOPOROSIS

REACTIONS (1)
  - BREAST CANCER METASTATIC [None]
